FAERS Safety Report 9517308 (Version 1)
Quarter: 2013Q3

REPORT INFORMATION
  Report Type: Spontaneous
  Country: US (occurrence: US)
  Receive Date: 20130911
  Receipt Date: 20130911
  Transmission Date: 20140515
  Serious: No
  Sender: FDA-Public Use
  Company Number: US-ASTRAZENECA-2013SE60991

PATIENT
  Age: 76 Year
  Sex: Female
  Weight: 90.7 kg

DRUGS (17)
  1. SYMBICORT [Suspect]
     Indication: CHRONIC OBSTRUCTIVE PULMONARY DISEASE
     Dosage: 160/4.5 MCG, 2 PUFFS BID
     Route: 055
     Dates: start: 2011, end: 201307
  2. SYMBICORT [Suspect]
     Indication: CHRONIC OBSTRUCTIVE PULMONARY DISEASE
     Dosage: 160/4.5 MCG, 2 PUFFS BID
     Route: 055
     Dates: start: 201307
  3. XOPENEX [Concomitant]
     Indication: PROPHYLAXIS AGAINST BRONCHOSPASM
     Dosage: 2 PUFFS Q6H
     Route: 055
     Dates: start: 201302
  4. SYNTHROID [Concomitant]
     Indication: THYROID DISORDER
     Route: 048
     Dates: start: 2003
  5. TRAMADOL [Concomitant]
     Indication: PAIN
     Route: 048
     Dates: start: 2011
  6. VIT D [Concomitant]
     Indication: VITAMIN SUPPLEMENTATION
     Route: 048
     Dates: start: 2011
  7. ZOCOR [Concomitant]
     Indication: BLOOD CHOLESTEROL ABNORMAL
     Route: 048
     Dates: start: 2003
  8. PROTONIX [Concomitant]
     Indication: GASTROOESOPHAGEAL REFLUX DISEASE
     Route: 048
     Dates: start: 2003
  9. CLARITIN [Concomitant]
     Indication: MULTIPLE ALLERGIES
     Route: 048
     Dates: start: 201307
  10. DITROPAN [Concomitant]
     Indication: HYPERTONIC BLADDER
     Route: 048
     Dates: start: 20130716, end: 201307
  11. GABAPENTIN [Concomitant]
     Indication: PAIN
     Route: 048
  12. MOTRIN [Concomitant]
     Indication: PAIN
     Route: 048
     Dates: start: 2011, end: 201306
  13. MOTRIN [Concomitant]
     Indication: PAIN
     Route: 048
     Dates: start: 2011, end: 201306
  14. VITAMIN B12 [Concomitant]
     Indication: VITAMIN B12 DEFICIENCY
     Dosage: 1 MONTH
     Route: 058
     Dates: start: 201302
  15. VITAMIN B12 [Concomitant]
     Indication: VITAMIN B12 DEFICIENCY
     Route: 048
     Dates: start: 2012
  16. LASIX [Concomitant]
     Indication: FLUID RETENTION
     Route: 048
  17. BABY ASPIRIN [Concomitant]
     Indication: CARDIAC DISORDER
     Route: 048
     Dates: start: 2003

REACTIONS (11)
  - Bladder disorder [Unknown]
  - Dry mouth [Unknown]
  - Back disorder [Unknown]
  - Back pain [Unknown]
  - Vitamin B12 decreased [Recovered/Resolved]
  - Weight increased [Not Recovered/Not Resolved]
  - Local swelling [Not Recovered/Not Resolved]
  - Dyspnoea [Unknown]
  - Eye pruritus [Recovered/Resolved]
  - Lip swelling [Not Recovered/Not Resolved]
  - Heart rate increased [Recovered/Resolved]
